FAERS Safety Report 7994521-2 (Version None)
Quarter: 2011Q4

REPORT INFORMATION
  Report Type: 
  Country: None (occurrence: None)
  Receive Date: 20111217
  Receipt Date: 20111217
  Transmission Date: 20120403
  Serious: Yes (Hospitalization)
  Sender: FDA-Public Use
  Company Number: None

PATIENT
  Sex: Female
  Weight: 76.4 kg

DRUGS (3)
  1. TAXOL [Suspect]
     Dosage: 135 MG
     Dates: end: 20111018
  2. CISPLATIN [Suspect]
     Dosage: 50 MG
     Dates: end: 20111018
  3. LORCET-HD [Concomitant]

REACTIONS (6)
  - DIARRHOEA [None]
  - URINE OUTPUT DECREASED [None]
  - DEHYDRATION [None]
  - WEIGHT DECREASED [None]
  - ABDOMINAL PAIN [None]
  - RENAL FAILURE ACUTE [None]
